FAERS Safety Report 19186090 (Version 1)
Quarter: 2021Q2

REPORT INFORMATION
  Report Type: Report from Study
  Country: None (occurrence: CA)
  Receive Date: 20210427
  Receipt Date: 20210427
  Transmission Date: 20210717
  Serious: Yes (Other)
  Sender: FDA-Public Use
  Company Number: CA-ABBVIE-21K-028-3876709-00

PATIENT
  Age: 55 Year
  Sex: Female

DRUGS (1)
  1. HUMIRA [Suspect]
     Active Substance: ADALIMUMAB
     Indication: CROHN^S DISEASE
     Route: 058
     Dates: start: 20121001, end: 202102

REACTIONS (5)
  - Vomiting [Unknown]
  - Systemic lupus erythematosus [Unknown]
  - Dizziness [Unknown]
  - Skin burning sensation [Unknown]
  - Nausea [Unknown]

NARRATIVE: CASE EVENT DATE: 202010
